FAERS Safety Report 12626888 (Version 1)
Quarter: 2016Q3

REPORT INFORMATION
  Report Type: Other
  Country: CZ (occurrence: CZ)
  Receive Date: 20160805
  Receipt Date: 20160805
  Transmission Date: 20161109
  Serious: Yes (Hospitalization)
  Sender: FDA-Public Use
  Company Number: CZ-HQ SPECIALTY-CZ-2016INT000708

PATIENT
  Age: 46 Year
  Sex: Female

DRUGS (3)
  1. APO-OMEPRAZOLE [Concomitant]
     Active Substance: OMEPRAZOLE
     Indication: PRODUCT USED FOR UNKNOWN INDICATION
     Dosage: (20 MG, 1 IN 1 D)
  2. ACIDUM FOLICUM [Concomitant]
     Active Substance: FOLIC ACID
     Indication: PRODUCT USED FOR UNKNOWN INDICATION
     Dosage: AFTER METHOTREXATE (10 MG, 1 IN 1 W)
  3. METHOTREXATE SODIUM. [Suspect]
     Active Substance: METHOTREXATE SODIUM
     Indication: RHEUMATOID ARTHRITIS
     Dosage: 2.1429 MG (15 MG, 1 IN 1 W)
     Route: 048
     Dates: start: 20160514, end: 20160521

REACTIONS (9)
  - Vomiting [Recovered/Resolved]
  - Subileus [Recovered/Resolved]
  - Abdominal pain [Recovered/Resolved]
  - Diarrhoea [Recovered/Resolved]
  - Hypotension [Recovered/Resolved]
  - Idiosyncratic drug reaction [Recovered/Resolved]
  - Renal failure [Recovered/Resolved]
  - Inflammatory marker increased [Unknown]
  - Drug eruption [Recovered/Resolved]

NARRATIVE: CASE EVENT DATE: 20160525
